FAERS Safety Report 19026232 (Version 3)
Quarter: 2021Q2

REPORT INFORMATION
  Report Type: Spontaneous
  Country: JP (occurrence: JP)
  Receive Date: 20210318
  Receipt Date: 20210629
  Transmission Date: 20210717
  Serious: Yes (Hospitalization, Other)
  Sender: FDA-Public Use
  Company Number: JP-AMGEN-JPNSP2021041762

PATIENT
  Age: 76 Year
  Sex: Female

DRUGS (18)
  1. GLUFAST [Concomitant]
     Active Substance: MITIGLINIDE
     Dosage: 10 MILLIGRAM, QD
     Route: 048
  2. FERROUS SULFATE. [Concomitant]
     Active Substance: FERROUS SULFATE
     Dosage: 1 DOSAGE FORM, BID
     Route: 048
  3. BAYASPIRIN [Concomitant]
     Active Substance: ASPIRIN
     Dosage: 100 MILLIGRAM, QD
     Route: 048
  4. TELMISARTAN. [Concomitant]
     Active Substance: TELMISARTAN
     Dosage: 40 MILLIGRAM, QD
     Route: 048
  5. ATELEC [Concomitant]
     Active Substance: CILNIDIPINE
     Dosage: 10 MILLIGRAM, QD
     Route: 048
  6. NESP [Suspect]
     Active Substance: DARBEPOETIN ALFA
     Indication: PRODUCT USED FOR UNKNOWN INDICATION
     Dosage: 30 MICROGRAM
     Route: 065
     Dates: start: 202012
  7. NESP [Suspect]
     Active Substance: DARBEPOETIN ALFA
     Dosage: 120 MICROGRAM
     Route: 065
     Dates: start: 20210219, end: 20210219
  8. NESP [Suspect]
     Active Substance: DARBEPOETIN ALFA
     Dosage: 180 MICROGRAM, QWK
     Route: 065
     Dates: start: 20210305
  9. CANALIA COMBINATION [Concomitant]
     Active Substance: CANAGLIFLOZIN\TENELIGLIPTIN
     Dosage: 1 DOSAGE FORM
     Route: 048
  10. NESP [Suspect]
     Active Substance: DARBEPOETIN ALFA
     Dosage: 180 MICROGRAM, Q2WK
     Route: 065
     Dates: start: 202102
  11. FOLIAMIN [FOLIC ACID] [Concomitant]
     Dosage: 5 MILLIGRAM, BID
     Route: 048
  12. NESP [Suspect]
     Active Substance: DARBEPOETIN ALFA
     Dosage: 60 MICROGRAM
     Route: 065
     Dates: start: 20210115
  13. SODIUM BICARBONATE. [Concomitant]
     Active Substance: SODIUM BICARBONATE
     Dosage: 2 GRAM
     Route: 048
  14. AMITIZA [Concomitant]
     Active Substance: LUBIPROSTONE
     Dosage: 1 DOSAGE FORM, BID
     Route: 048
  15. FEBURIC [Concomitant]
     Active Substance: FEBUXOSTAT
     Dosage: 10 MILLIGRAM, QD
     Route: 048
  16. ROSUVASTATIN [ROSUVASTATIN CALCIUM] [Concomitant]
     Active Substance: ROSUVASTATIN CALCIUM
     Dosage: 2.5 MILLIGRAM, QD
     Route: 048
  17. ARGAMATE [Concomitant]
     Active Substance: CALCIUM POLYSTYRENE SULFONATE
     Dosage: 25 GRAM, BID
     Route: 048
  18. HERBESSER [Concomitant]
     Active Substance: DILTIAZEM HYDROCHLORIDE
     Dosage: 100 MILLIGRAM, QD
     Route: 048

REACTIONS (4)
  - Seizure [Unknown]
  - Azotaemia [Recovering/Resolving]
  - Anuria [Unknown]
  - Altered state of consciousness [Unknown]

NARRATIVE: CASE EVENT DATE: 20210301
